FAERS Safety Report 17980224 (Version 3)
Quarter: 2020Q3

REPORT INFORMATION
  Report Type: Report from Study
  Country: US (occurrence: US)
  Receive Date: 20200703
  Receipt Date: 20200908
  Transmission Date: 20201103
  Serious: No
  Sender: FDA-Public Use
  Company Number: NVSC2020US187025

PATIENT
  Age: 73 Year
  Sex: Male

DRUGS (3)
  1. ENTRESTO [Suspect]
     Active Substance: SACUBITRIL\VALSARTAN
     Indication: CARDIAC FAILURE
     Dosage: 100 MG, BID (49/51)
     Route: 048
     Dates: start: 202005
  2. ENTRESTO [Suspect]
     Active Substance: SACUBITRIL\VALSARTAN
     Dosage: 100 MG, BID  (49/51)
     Route: 048
     Dates: start: 20200701
  3. ENTRESTO [Suspect]
     Active Substance: SACUBITRIL\VALSARTAN
     Dosage: 100 MG, BID  (49/51)
     Route: 048
     Dates: start: 20200902

REACTIONS (3)
  - Muscle atrophy [Unknown]
  - Blood glucose abnormal [Unknown]
  - Weight abnormal [Unknown]

NARRATIVE: CASE EVENT DATE: 201905
